FAERS Safety Report 5832409-3 (Version None)
Quarter: 2008Q3

REPORT INFORMATION
  Report Type: 
  Country: None (occurrence: None)
  Receive Date: 20080804
  Receipt Date: 20080725
  Transmission Date: 20090109
  Serious: Yes (Hospitalization)
  Sender: FDA-Public Use
  Company Number: US-TYCO HEALTHCARE/MALLINCKRODT-T200801137

PATIENT

DRUGS (5)
  1. OXYCODONE HCL [Suspect]
     Indication: ARTHRALGIA
     Dosage: 15 MG, BID (1 TAB Q12H)
     Route: 048
     Dates: start: 20080601, end: 20080601
  2. SYNTHROID [Concomitant]
     Indication: HYPOTHYROIDISM
     Dosage: .15 MG, QD
     Route: 048
  3. BENICAR [Concomitant]
     Indication: BLOOD PRESSURE
     Dosage: 20 MG, QD
     Route: 048
  4. AMIODARONE [Concomitant]
     Indication: HEART RATE
     Dosage: 100 MG, QD (1/2 DAILY)
     Route: 048
  5. TOPROL-XL [Concomitant]
     Indication: HEART RATE DECREASED
     Dosage: 1.5 DAILY
     Route: 048

REACTIONS (2)
  - ATRIAL FIBRILLATION [None]
  - PRURITUS GENERALISED [None]
